FAERS Safety Report 11193236 (Version 1)
Quarter: 2015Q2

REPORT INFORMATION
  Report Type: Spontaneous
  Country: US (occurrence: None)
  Receive Date: 20150615
  Receipt Date: 20150615
  Transmission Date: 20150821
  Serious: Yes (Other)
  Sender: FDA-Public Use
  Company Number: None

PATIENT
  Age: 65 Year
  Sex: Female
  Weight: 72.58 kg

DRUGS (1)
  1. LOSARTAN [Suspect]
     Active Substance: LOSARTAN
     Indication: HYPERTENSION
     Dosage: DURATION: AT LEAST 7 YEARS

REACTIONS (3)
  - Actinic keratosis [None]
  - Drug eruption [None]
  - Systemic lupus erythematosus [None]

NARRATIVE: CASE EVENT DATE: 20080915
